FAERS Safety Report 11109461 (Version 1)
Quarter: 2015Q2

REPORT INFORMATION
  Report Type: Report from Study
  Country: FR (occurrence: FR)
  Receive Date: 20150513
  Receipt Date: 20150513
  Transmission Date: 20150821
  Serious: Yes (Hospitalization)
  Sender: FDA-Public Use
  Company Number: FR-GLAXOSMITHKLINE-FR2015GSK064410

PATIENT
  Age: 40 Year
  Sex: Female

DRUGS (6)
  1. TAHOR [Suspect]
     Active Substance: ATORVASTATIN CALCIUM
  2. OMEGA-3-ACID ETHYL ESTERS. [Suspect]
     Active Substance: OMEGA-3-ACID ETHYL ESTERS
     Indication: ISCHAEMIC HEART DISEASE PROPHYLAXIS
     Dosage: UNK
     Dates: start: 20070530
  3. KARDEGIC [Concomitant]
     Active Substance: ASPIRIN LYSINE
  4. TENORMIN [Concomitant]
     Active Substance: ATENOLOL
  5. PLAVIX [Concomitant]
     Active Substance: CLOPIDOGREL BISULFATE
  6. TRIATEC [Concomitant]
     Active Substance: RAMIPRIL

REACTIONS (1)
  - Hernia [Unknown]

NARRATIVE: CASE EVENT DATE: 200903
